FAERS Safety Report 19849876 (Version 3)
Quarter: 2021Q4

REPORT INFORMATION
  Report Type: Spontaneous
  Country: JP (occurrence: JP)
  Receive Date: 20210917
  Receipt Date: 20211202
  Transmission Date: 20220303
  Serious: Yes (Other)
  Sender: FDA-Public Use
  Company Number: JP-GSKJP-JP2021JPN193451

PATIENT
  Sex: Male

DRUGS (2)
  1. BOTOX [Suspect]
     Active Substance: ONABOTULINUMTOXINA
     Indication: Muscle spasticity
     Dosage: 400 UNITS, SINGLE
     Route: 030
     Dates: start: 20200515, end: 20200515
  2. WARFARIN SODIUM [Suspect]
     Active Substance: WARFARIN SODIUM
     Indication: Product used for unknown indication
     Dosage: 4 MG

REACTIONS (1)
  - Internal haemorrhage [Recovered/Resolved]

NARRATIVE: CASE EVENT DATE: 20210525
